FAERS Safety Report 10103887 (Version 1)
Quarter: 2014Q2

REPORT INFORMATION
  Report Type: Spontaneous
  Country: IT (occurrence: IT)
  Receive Date: 20140424
  Receipt Date: 20140424
  Transmission Date: 20141212
  Serious: Yes (Hospitalization)
  Sender: FDA-Public Use
  Company Number: IT-ABBVIE-14P-083-1229794-00

PATIENT
  Age: 83 Year
  Sex: Male

DRUGS (2)
  1. CLARITHROMYCIN [Suspect]
     Indication: PRODUCT USED FOR UNKNOWN INDICATION
     Route: 048
     Dates: start: 20130502, end: 20130509
  2. COUMADIN [Interacting]
     Indication: DEEP VEIN THROMBOSIS
     Route: 048
     Dates: start: 20070101, end: 20130509

REACTIONS (3)
  - Haematuria [Recovered/Resolved]
  - Drug interaction [Recovered/Resolved]
  - Hypocoagulable state [Recovered/Resolved]
